FAERS Safety Report 12855867 (Version 1)
Quarter: 2016Q4

REPORT INFORMATION
  Report Type: Spontaneous
  Country: DK (occurrence: None)
  Receive Date: 20161014
  Receipt Date: 20161014
  Transmission Date: 20170207
  Serious: Yes (Hospitalization)
  Sender: FDA-Public Use
  Company Number: DK2016K1861SPO

PATIENT
  Age: 75 Year
  Sex: Male

DRUGS (7)
  1. ALENDRONATE [Suspect]
     Active Substance: ALENDRONATE SODIUM
     Indication: OSTEOPOROSIS
     Dates: start: 20110930
  2. SIMVASTATIN. [Concomitant]
     Active Substance: SIMVASTATIN
  3. ISOSORBIDE DINITRATE. [Suspect]
     Active Substance: ISOSORBIDE DINITRATE
     Indication: MYOCARDIAL ISCHAEMIA
     Dosage: 60 MG, OD; UNKNOWN
     Dates: start: 20100514, end: 20140829
  4. CARVEDILOL. [Concomitant]
     Active Substance: CARVEDILOL
  5. FUROSEMID [Suspect]
     Active Substance: FUROSEMIDE
     Indication: CARDIAC FAILURE
     Dates: end: 20150227
  6. SPIRONOLACTONE (SPIRONOLACTONE) [Suspect]
     Active Substance: SPIRONOLACTONE
     Indication: CARDIAC FAILURE
     Dates: start: 20131029, end: 20140822
  7. ENALAPRIL GENERIC (ENALAPRIL) UNKNOWN [Suspect]
     Active Substance: ENALAPRIL
     Indication: CARDIAC FAILURE
     Route: 048
     Dates: start: 20091221

REACTIONS (8)
  - Dehydration [None]
  - Blood pressure increased [None]
  - Asthenia [None]
  - Amnesia [None]
  - Gait disturbance [None]
  - Eating disorder [None]
  - Weight decreased [None]
  - Dysstasia [None]

NARRATIVE: CASE EVENT DATE: 20140822
